FAERS Safety Report 20421036 (Version 2)
Quarter: 2022Q3

REPORT INFORMATION
  Report Type: Spontaneous
  Country: US (occurrence: US)
  Receive Date: 20220203
  Receipt Date: 20220920
  Transmission Date: 20221027
  Serious: No
  Sender: FDA-Public Use
  Company Number: US-PFIZER INC-2020102276

PATIENT
  Age: 62 Year
  Sex: Female
  Weight: 67.13 kg

DRUGS (7)
  1. XELJANZ XR [Suspect]
     Active Substance: TOFACITINIB CITRATE
     Dosage: 11 MG, ALTERNATE DAY (EVERY OTHER DAY)
  2. METHOTREXATE [Concomitant]
     Active Substance: METHOTREXATE
     Indication: Rheumatoid arthritis
     Dosage: 7.5 MG, WEEKLY (THREE TAB ONCE A WEEK)
  3. SULFASALAZINE [Concomitant]
     Active Substance: SULFASALAZINE
     Indication: Rheumatoid arthritis
     Dosage: 500 MG, 3X/DAY (THREE TAB DAILY)
  4. ROSUVASTATIN CALCIUM [Concomitant]
     Active Substance: ROSUVASTATIN CALCIUM
     Indication: Cardiac disorder
     Dosage: 40 MG, 1X/DAY (ONCE DAILY)
  5. FOLIC ACID [Concomitant]
     Active Substance: FOLIC ACID
     Dosage: 1 MG, 2X/DAY (TWO TABLETS DAILY)
  6. CALCIUM ACTIVATED [CALCIUM] [Concomitant]
     Indication: Osteopenia
     Dosage: UNK
  7. OMEGA JOINT [Concomitant]
     Indication: Arthropathy
     Dosage: UNK

REACTIONS (3)
  - Pain [Unknown]
  - Intentional product misuse [Unknown]
  - Overdose [Unknown]
